FAERS Safety Report 4335550-X (Version None)
Quarter: 2004Q1

REPORT INFORMATION
  Report Type: 
  Country: None (occurrence: None)
  Receive Date: 20040329
  Receipt Date: 20040205
  Transmission Date: 20041129
  Serious: No
  Sender: FDA-Public Use
  Company Number: USA040258593

PATIENT
  Age: 44 Year
  Sex: Male
  Weight: 75 kg

DRUGS (5)
  1. STRATTERA [Suspect]
     Indication: ATTENTION DEFICIT/HYPERACTIVITY DISORDER
     Dosage: 80 MG/DAY
     Dates: start: 20031201
  2. MULTI-VITAMIN [Concomitant]
  3. VITAMIN B-12 [Concomitant]
  4. ESTER-C (CALCIUM ASCORBATE) [Concomitant]
  5. LEXAPRO [Concomitant]

REACTIONS (4)
  - AGGRESSION [None]
  - DRY MOUTH [None]
  - IRRITABILITY [None]
  - MOOD SWINGS [None]
